FAERS Safety Report 20874248 (Version 1)
Quarter: 2022Q2

REPORT INFORMATION
  Report Type: Spontaneous
  Country: US (occurrence: None)
  Receive Date: 20220525
  Receipt Date: 20220525
  Transmission Date: 20220721
  Serious: Yes (Hospitalization)
  Sender: FDA-Public Use
  Company Number: None

PATIENT
  Age: 75 Year
  Sex: Male

DRUGS (6)
  1. ESBRIET [Suspect]
     Active Substance: PIRFENIDONE
     Indication: Idiopathic pulmonary fibrosis
     Dosage: FREQUENCY : 3 TIMES A DAY;  WITH FOOD?
     Route: 048
     Dates: start: 20210210
  2. ESBRIET [Concomitant]
     Active Substance: PIRFENIDONE
  3. ESBRIET [Concomitant]
     Active Substance: PIRFENIDONE
  4. MAGNESIUM CAP [Concomitant]
  5. NICODERM CQ DIS [Concomitant]
  6. PROAIR HFA [Concomitant]
     Active Substance: ALBUTEROL SULFATE

REACTIONS (1)
  - Aortic valve replacement [None]

NARRATIVE: CASE EVENT DATE: 20220511
